FAERS Safety Report 6184982-6 (Version None)
Quarter: 2009Q2

REPORT INFORMATION
  Report Type: 
  Country: None (occurrence: None)
  Receive Date: 20090511
  Receipt Date: 20090225
  Transmission Date: 20091009
  Serious: No
  Sender: FDA-Public Use
  Company Number: A0770458A

PATIENT
  Age: 65 Year
  Sex: Female

DRUGS (8)
  1. COREG CR [Suspect]
     Indication: HYPERTENSION
     Dosage: 20MG PER DAY
     Route: 048
     Dates: start: 20090211
  2. WELCHOL [Concomitant]
  3. LEVOTHROID [Concomitant]
  4. ASPIRIN [Concomitant]
  5. PREMARIN [Concomitant]
  6. FLAX SEED OIL [Concomitant]
  7. MULTI-VITAMIN [Concomitant]
  8. XANAX [Concomitant]

REACTIONS (3)
  - FATIGUE [None]
  - FLATULENCE [None]
  - INSOMNIA [None]
